FAERS Safety Report 8847084 (Version 2)
Quarter: 2012Q4

REPORT INFORMATION
  Report Type: 
  Country: NO (occurrence: NO)
  Receive Date: 20121018
  Receipt Date: 20121114
  Transmission Date: 20130627
  Serious: Yes (Life-Threatening, Hospitalization)
  Sender: FDA-Public Use
  Company Number: PHHY2012NO091531

PATIENT
  Age: 37 Year
  Sex: Male

DRUGS (13)
  1. TASIGNA [Suspect]
     Indication: CHRONIC MYELOID LEUKAEMIA
     Dosage: 300 mg, BID
     Route: 048
     Dates: start: 20120608, end: 20120917
  2. LEVAXIN [Concomitant]
     Route: 048
  3. LEVAXIN [Concomitant]
     Route: 048
     Dates: start: 2008
  4. LIPITOR [Concomitant]
     Indication: HYPERCHOLESTEROLAEMIA
     Route: 048
  5. LIPITOR [Concomitant]
     Route: 048
     Dates: start: 2008
  6. METOPROLOL [Concomitant]
     Indication: CORONARY ARTERY DISEASE
     Route: 048
  7. METOPROLOL [Concomitant]
     Route: 048
     Dates: start: 2008
  8. ALBYL-E [Concomitant]
     Indication: PROPHYLAXIS
     Route: 048
  9. ALBYL-E [Concomitant]
     Route: 048
     Dates: start: 2008
  10. PLAVIX [Concomitant]
     Indication: PROPHYLAXIS
     Route: 048
  11. PLAVIX [Concomitant]
     Route: 048
     Dates: start: 2011
  12. TRIATEC [Concomitant]
     Indication: HYPERTENSION
     Dosage: UNK
     Route: 048
  13. TRIATEC [Concomitant]
     Route: 048
     Dates: start: 2008

REACTIONS (5)
  - Haemodynamic instability [Recovered/Resolved]
  - Pericardial effusion [Recovered/Resolved]
  - Hypotension [Recovered/Resolved]
  - Pneumonia [Not Recovered/Not Resolved]
  - Pleural effusion [Recovered/Resolved]
